FAERS Safety Report 13545626 (Version 1)
Quarter: 2017Q2

REPORT INFORMATION
  Report Type: Spontaneous
  Country: US (occurrence: US)
  Receive Date: 20170515
  Receipt Date: 20170515
  Transmission Date: 20170830
  Serious: No
  Sender: FDA-Public Use
  Company Number: US-PFIZER INC-2017206444

PATIENT
  Sex: Female

DRUGS (1)
  1. XELJANZ [Suspect]
     Active Substance: TOFACITINIB CITRATE
     Dosage: UNK

REACTIONS (11)
  - Dry skin [Unknown]
  - Weight increased [Unknown]
  - Arthralgia [Unknown]
  - Laboratory test abnormal [Unknown]
  - Muscle spasms [Unknown]
  - Nail disorder [Unknown]
  - Asthenia [Unknown]
  - Hand deformity [Unknown]
  - Myalgia [Unknown]
  - Blood pressure increased [Unknown]
  - Nodal osteoarthritis [Unknown]
